FAERS Safety Report 4650378-9 (Version None)
Quarter: 2005Q2

REPORT INFORMATION
  Report Type: 
  Country: None (occurrence: None)
  Receive Date: 20050429
  Receipt Date: 20050418
  Transmission Date: 20051028
  Serious: No
  Sender: FDA-Public Use
  Company Number: 2005AC00626

PATIENT
  Age: 88 Year
  Sex: Male
  Weight: 85 kg

DRUGS (1)
  1. MEROPENEM [Suspect]
     Indication: CHOLECYSTITIS
     Dates: start: 20040901, end: 20040913

REACTIONS (1)
  - EPILEPSY [None]
